FAERS Safety Report 15897909 (Version 1)
Quarter: 2019Q1

REPORT INFORMATION
  Report Type: Spontaneous
  Country: US (occurrence: US)
  Receive Date: 20190201
  Receipt Date: 20190201
  Transmission Date: 20190417
  Serious: Yes (Other)
  Sender: FDA-Public Use
  Company Number: US-009507513-1901USA010723

PATIENT
  Age: 21 Year
  Sex: Female

DRUGS (2)
  1. NEXPLANON [Suspect]
     Active Substance: ETONOGESTREL
     Dosage: IMPLANT, 3 YEARS
     Route: 059
     Dates: start: 20150622
  2. NEXPLANON [Suspect]
     Active Substance: ETONOGESTREL
     Dosage: ANOTHER ROD INTO THE OPPOSITE ARM
     Route: 059
     Dates: start: 20180524

REACTIONS (6)
  - Device dislocation [Not Recovered/Not Resolved]
  - Overdose [Unknown]
  - Device deployment issue [Not Recovered/Not Resolved]
  - Complication associated with device [Recovered/Resolved]
  - Incorrect product administration duration [Unknown]
  - Complication of device removal [Not Recovered/Not Resolved]

NARRATIVE: CASE EVENT DATE: 20150622
